FAERS Safety Report 4402208-8 (Version None)
Quarter: 2004Q3

REPORT INFORMATION
  Report Type: 
  Country: None (occurrence: None)
  Receive Date: 20040720
  Receipt Date: 20031121
  Transmission Date: 20050211
  Serious: Yes (Hospitalization, Other)
  Sender: FDA-Public Use
  Company Number: US-MERCK-0311USA02541

PATIENT
  Age: 45 Year
  Sex: Male
  Weight: 68 kg

DRUGS (9)
  1. APAP TAB [Concomitant]
     Indication: CHEST PAIN
     Route: 065
     Dates: start: 20020301, end: 20021201
  2. AMITRIPTYLINE HYDROCHLORIDE [Concomitant]
     Indication: INFLAMMATION
     Route: 065
  3. SOMA [Concomitant]
     Indication: SLEEP DISORDER
     Route: 065
  4. SOMA [Concomitant]
     Indication: INFLAMMATION
     Route: 065
  5. CODEINE [Concomitant]
     Indication: CHEST PAIN
     Route: 065
     Dates: start: 20020301, end: 20021201
  6. FLEXERIL [Concomitant]
     Indication: PAIN
     Route: 065
  7. FLEXERIL [Concomitant]
     Indication: INFLAMMATION
     Route: 065
  8. VIOXX [Suspect]
     Indication: BACK PAIN
     Route: 048
     Dates: start: 20020901, end: 20021201
  9. VIOXX [Suspect]
     Indication: INFLAMMATION
     Route: 048
     Dates: start: 20020901, end: 20021201

REACTIONS (11)
  - ANGINA PECTORIS [None]
  - ASTHENIA [None]
  - BLOOD CHOLESTEROL INCREASED [None]
  - CEREBROVASCULAR ACCIDENT [None]
  - CHEST PAIN [None]
  - DYSPEPSIA [None]
  - DYSPNOEA [None]
  - GENERALISED ANXIETY DISORDER [None]
  - NAUSEA [None]
  - SYNCOPE [None]
  - VOMITING [None]
